FAERS Safety Report 5567094-1 (Version None)
Quarter: 2007Q4

REPORT INFORMATION
  Report Type: 
  Country: None (occurrence: None)
  Receive Date: 20071219
  Receipt Date: 20060919
  Transmission Date: 20080405
  Serious: Yes (Death, Hospitalization)
  Sender: FDA-Public Use
  Company Number: US-ROCHE-463758

PATIENT
  Age: 70 Year
  Sex: Female

DRUGS (2)
  1. XELODA [Suspect]
     Dosage: DRUG GIVEN FOR FOURTEEN DAYS EVERY THREE WEEKS, TOTAL DAILY DOSE: 2000MG/M2. DRUG WAS DISCONTINUED +
     Route: 048
     Dates: start: 20020201
  2. FLUOROURACIL [Concomitant]
     Dosage: PATIENT RECEIVED DRUG AS CONTINUOUS INFUSION ON MONDAY TO FRIDAY, WITH WEEKENDS OFF.
     Dates: start: 20011201, end: 20011201

REACTIONS (2)
  - DEATH [None]
  - RECALL PHENOMENON [None]
